FAERS Safety Report 13900902 (Version 2)
Quarter: 2017Q3

REPORT INFORMATION
  Report Type: Spontaneous
  Country: JP (occurrence: JP)
  Receive Date: 20170824
  Receipt Date: 20170831
  Transmission Date: 20171127
  Serious: Yes (Other)
  Sender: FDA-Public Use
  Company Number: JP-TEVA-799089ROM

PATIENT
  Age: 44 Year
  Sex: Male
  Weight: 73 kg

DRUGS (8)
  1. FENTANYL. [Suspect]
     Active Substance: FENTANYL
     Indication: ANAESTHESIA
     Dosage: 200 MCG
     Route: 065
  2. ROCURONIUM BROMIDE. [Concomitant]
     Active Substance: ROCURONIUM BROMIDE
     Dosage: 50MG
     Route: 065
  3. PROPOFOL. [Interacting]
     Active Substance: PROPOFOL
     Indication: ANAESTHESIA
     Dosage: 100MG
     Route: 065
  4. REMIFENTANIL HYDROCHLORIDE [Interacting]
     Active Substance: REMIFENTANIL HYDROCHLORIDE
     Indication: MAINTENANCE OF ANAESTHESIA
     Dosage: 0.1 TO 0.25 MCG/KG/MIN
     Route: 065
  5. LIDOCAINE. [Concomitant]
     Active Substance: LIDOCAINE
     Indication: LOCAL ANAESTHESIA
     Dosage: 1%
     Route: 065
  6. DESFLURANE. [Concomitant]
     Active Substance: DESFLURANE
     Indication: MAINTENANCE OF ANAESTHESIA
     Dosage: 4.5%
     Route: 065
  7. EPINEPHRINE. [Concomitant]
     Active Substance: EPINEPHRINE
     Dosage: 4 ML OF 1:10000
     Route: 065
  8. REMIFENTANIL HYDROCHLORIDE [Interacting]
     Active Substance: REMIFENTANIL HYDROCHLORIDE
     Indication: ANAESTHESIA
     Dosage: 0.1 MCG/KG/MIN
     Route: 065

REACTIONS (3)
  - Sinus arrest [Recovered/Resolved]
  - Trigemino-cardiac reflex [Unknown]
  - Drug interaction [Unknown]
